FAERS Safety Report 21804099 (Version 3)
Quarter: 2023Q1

REPORT INFORMATION
  Report Type: Spontaneous
  Country: TW (occurrence: TW)
  Receive Date: 20230102
  Receipt Date: 20230118
  Transmission Date: 20230418
  Serious: Yes (Other)
  Sender: FDA-Public Use
  Company Number: TW-002147023-NVSC2022TW300557

PATIENT
  Age: 5 Year
  Sex: Male

DRUGS (11)
  1. MONTELUKAST [Suspect]
     Active Substance: MONTELUKAST SODIUM
     Indication: Prophylaxis
     Dosage: 4 MG, QHS
     Route: 048
     Dates: start: 202212, end: 202212
  2. NOSCOTIN [Concomitant]
     Indication: Product used for unknown indication
     Dosage: (0.89 TABLET), TID
     Route: 048
     Dates: start: 20221215
  3. CABOTIN [Concomitant]
     Indication: Product used for unknown indication
     Dosage: (0.89 TABLET), TID
     Route: 048
     Dates: start: 20221215
  4. BRANDYL [Concomitant]
     Indication: Product used for unknown indication
     Dosage: (0.89 TABLET), TID
     Route: 048
     Dates: start: 20221215
  5. CYPRODINE [Concomitant]
     Indication: Product used for unknown indication
     Dosage: 0.89 TABLET, TID
     Route: 048
     Dates: start: 20221215
  6. MIXAPIN [Concomitant]
     Indication: Product used for unknown indication
     Dosage: (0.67 TABLET), QHS
     Route: 048
     Dates: start: 20221215
  7. DEALLERGY [Concomitant]
     Indication: Product used for unknown indication
     Dosage: 0.67 TABLET, QHS
     Route: 048
     Dates: start: 20221215
  8. BRONCOLIN [Concomitant]
     Active Substance: CAMPHOR (NATURAL)\MENTHOL
     Indication: Product used for unknown indication
     Dosage: 0.44 TABLET, PRN
     Route: 048
     Dates: start: 20221215
  9. BRONCOLIN [Concomitant]
     Active Substance: CAMPHOR (NATURAL)\MENTHOL
     Dosage: 0.44 TABLET, PRN
     Route: 048
     Dates: start: 20221216
  10. DOXYCOUGH [Concomitant]
     Indication: Product used for unknown indication
     Dosage: 6 ML, TID
     Route: 048
     Dates: start: 20221215
  11. DECA [Concomitant]
     Indication: Product used for unknown indication
     Dosage: 1.22 TABLE, TID
     Route: 048
     Dates: start: 20221216

REACTIONS (6)
  - Thrombocytopenia [Recovering/Resolving]
  - Hernia [Not Recovered/Not Resolved]
  - Rash [Recovered/Resolved]
  - Pigmentation disorder [Recovered/Resolved]
  - Fatigue [Recovered/Resolved]
  - Off label use [Unknown]

NARRATIVE: CASE EVENT DATE: 20221201
